FAERS Safety Report 7631499-5 (Version None)
Quarter: 2011Q3

REPORT INFORMATION
  Report Type: 
  Country: None (occurrence: None)
  Receive Date: 20110725
  Receipt Date: 20110720
  Transmission Date: 20111222
  Serious: Yes (Hospitalization, Other)
  Sender: FDA-Public Use
  Company Number: JP-PFIZER INC-2011137661

PATIENT
  Age: 50 Year
  Sex: Male
  Weight: 59.9 kg

DRUGS (7)
  1. ARICEPT [Suspect]
     Indication: DEMENTIA
     Dosage: 2.5 MG, 1X/DAY
     Route: 048
     Dates: start: 19960101, end: 20110122
  2. SELEGILINE [Suspect]
     Indication: PARKINSON'S DISEASE
     Dosage: 25 MG, 2X/DAY
     Route: 048
     Dates: start: 19960101, end: 20110119
  3. PRAMIPEXOLE DIHYDROCHLORIDE [Suspect]
     Indication: DEMENTIA
  4. ARTANE [Suspect]
     Indication: PARKINSON'S DISEASE
     Dosage: 2 MG, 3X/DAY
     Route: 048
     Dates: start: 20100101, end: 20110114
  5. PRAMIPEXOLE DIHYDROCHLORIDE [Suspect]
     Indication: PARKINSON'S DISEASE
     Dosage: 1.0 MG, 3X/DAY
     Route: 048
     Dates: start: 19960101, end: 20110127
  6. CARBIDOPA AND LEVODOPA [Concomitant]
     Indication: PARKINSON'S DISEASE
     Dosage: 3X/DAY 150MG, 150MG AND 100 MG
     Route: 048
  7. COMTAN [Concomitant]
     Indication: PARKINSON'S DISEASE
     Dosage: 100 MG, 3X/DAY
     Route: 048

REACTIONS (7)
  - COGNITIVE DISORDER [None]
  - DEPRESSIVE SYMPTOM [None]
  - SUICIDAL IDEATION [None]
  - HALLUCINATION [None]
  - DELUSION [None]
  - AGITATION [None]
  - PSYCHOMOTOR HYPERACTIVITY [None]
